FAERS Safety Report 5060395-5 (Version None)
Quarter: 2006Q3

REPORT INFORMATION
  Report Type: 
  Country: None (occurrence: None)
  Receive Date: 20060725
  Receipt Date: 20060622
  Transmission Date: 20061208
  Serious: Yes (Hospitalization)
  Sender: FDA-Public Use
  Company Number: JP-SP-2006-01570

PATIENT
  Age: 78 Year
  Sex: Male

DRUGS (5)
  1. IMMUCYST [Suspect]
     Indication: BLADDER CANCER
     Route: 043
     Dates: start: 20050314, end: 20050614
  2. IMMUCYST [Suspect]
     Route: 043
     Dates: start: 20050314, end: 20050614
  3. GOSERELIN ACETATE [Concomitant]
     Route: 058
     Dates: start: 20050614
  4. BICALUTAMIDE [Concomitant]
     Route: 048
     Dates: start: 20050517, end: 20050627
  5. EVIPROSTAT [Concomitant]
     Dosage: 3 TAB/ DAY
     Route: 048
     Dates: start: 20050906

REACTIONS (2)
  - PULMONARY TUBERCULOSIS [None]
  - TUBERCULOSIS OF GENITOURINARY SYSTEM [None]
